FAERS Safety Report 5171576-4 (Version None)
Quarter: 2006Q4

REPORT INFORMATION
  Report Type: 
  Country: None (occurrence: None)
  Receive Date: 20061208
  Receipt Date: 20061208
  Transmission Date: 20070319
  Serious: Yes (Other)
  Sender: FDA-Public Use
  Company Number: None

PATIENT
  Sex: Female
  Weight: 44.9061 kg

DRUGS (2)
  1. RISPERDAL [Suspect]
     Dosage: 0.25MG ONE DOSE
     Dates: start: 20061109, end: 20061109
  2. HALDOL [Suspect]
     Dosage: 2 MG ONE DOSE
     Dates: start: 20061109, end: 20061109

REACTIONS (1)
  - DYSTONIA [None]
